FAERS Safety Report 6480359-4 (Version None)
Quarter: 2009Q4

REPORT INFORMATION
  Report Type: 
  Country: None (occurrence: None)
  Receive Date: 20091208
  Receipt Date: 20091111
  Transmission Date: 20100525
  Serious: Yes (Other)
  Sender: FDA-Public Use
  Company Number: US-JNJCH-2009029585

PATIENT
  Age: 62 Year
  Sex: Female
  Weight: 99.8 kg

DRUGS (1)
  1. NEOSPORIN LIP HEALTH DAILY HYDRATION THERAPY [Suspect]
     Indication: CHAPPED LIPS
     Dosage: TEXT:UNSPECIFIED ONCE A DAY
     Route: 061
     Dates: start: 20091107, end: 20091107

REACTIONS (6)
  - APPLICATION SITE BURN [None]
  - APPLICATION SITE DRYNESS [None]
  - APPLICATION SITE SCAB [None]
  - APPLICATION SITE SWELLING [None]
  - CHAPPED LIPS [None]
  - DISCOMFORT [None]
